FAERS Safety Report 11113716 (Version 2)
Quarter: 2015Q4

REPORT INFORMATION
  Report Type: Spontaneous
  Country: JP (occurrence: JP)
  Receive Date: 20150514
  Receipt Date: 20151120
  Transmission Date: 20160304
  Serious: Yes (Hospitalization, Other)
  Sender: FDA-Public Use
  Company Number: JP-GLAXOSMITHKLINE-JP2015JPN062741

PATIENT
  Age: 30 Year
  Sex: Female

DRUGS (3)
  1. CELESTAMINE [Concomitant]
     Active Substance: BETAMETHASONE\DEXCHLORPHENIRAMINE MALEATE
  2. LAMICTAL [Suspect]
     Active Substance: LAMOTRIGINE
     Route: 048
  3. PL COMBINATION GRANULES [Concomitant]

REACTIONS (9)
  - Toxic epidermal necrolysis [Unknown]
  - Oral mucosa erosion [Unknown]
  - Oral mucosal blistering [Unknown]
  - Lip oedema [Unknown]
  - Erythema [Unknown]
  - Oral disorder [Unknown]
  - Dyspnoea [Unknown]
  - Nasopharyngitis [Unknown]
  - Pyrexia [Unknown]
